FAERS Safety Report 21966952 (Version 1)
Quarter: 2023Q1

REPORT INFORMATION
  Report Type: Other
  Country: US (occurrence: US)
  Receive Date: 20230208
  Receipt Date: 20230208
  Transmission Date: 20230418
  Serious: No
  Sender: FDA-Public Use
  Company Number: US-TRAVERE-2022TVT00404

PATIENT
  Age: 6 Year
  Sex: Male

DRUGS (1)
  1. CHOLIC ACID [Suspect]
     Active Substance: CHOLIC ACID
     Indication: Metabolic disorder
     Route: 048
     Dates: start: 20160326

REACTIONS (1)
  - Diarrhoea [Recovered/Resolved]
